FAERS Safety Report 8350903-0 (Version None)
Quarter: 2012Q2

REPORT INFORMATION
  Report Type: 
  Country: None (occurrence: None)
  Receive Date: 20120510
  Receipt Date: 20101110
  Transmission Date: 20120825
  Serious: No
  Sender: FDA-Public Use
  Company Number: US-TEVA-2010005887

PATIENT
  Sex: Female
  Weight: 90.8 kg

DRUGS (3)
  1. RITALIN [Concomitant]
     Dates: start: 19840101
  2. NUVIGIL [Suspect]
     Dosage: 150 MILLIGRAM;
     Route: 048
     Dates: start: 20090101
  3. NUVIGIL [Suspect]
     Indication: NARCOLEPSY
     Dosage: 250 MILLIGRAM;
     Route: 048
     Dates: start: 20090101, end: 20090101

REACTIONS (3)
  - DRUG INEFFECTIVE [None]
  - DRUG EFFECT INCREASED [None]
  - DRY MOUTH [None]
